FAERS Safety Report 9110547 (Version 1)
Quarter: 2013Q1

REPORT INFORMATION
  Report Type: Spontaneous
  Country: US (occurrence: US)
  Receive Date: 20130219
  Receipt Date: 20130219
  Transmission Date: 20140127
  Serious: No
  Sender: FDA-Public Use
  Company Number: US-BRACCO-008396

PATIENT
  Age: 5 Day
  Sex: Male

DRUGS (2)
  1. ISOVUE-M [Suspect]
     Indication: PRODUCT USED FOR UNKNOWN INDICATION
     Dosage: CONTRAST INSTILLED VIA A FEEDING TUBE
     Route: 048
     Dates: start: 20120801, end: 20120801
  2. ISOVUE-M [Suspect]
     Indication: X-RAY WITH CONTRAST UPPER GASTROINTESTINAL TRACT
     Dosage: CONTRAST INSTILLED VIA A FEEDING TUBE
     Route: 048
     Dates: start: 20120801, end: 20120801

REACTIONS (1)
  - Off label use [Unknown]
